FAERS Safety Report 7568714-2 (Version None)
Quarter: 2011Q2

REPORT INFORMATION
  Report Type: 
  Country: None (occurrence: None)
  Receive Date: 20110617
  Receipt Date: 20110608
  Transmission Date: 20111010
  Serious: Yes (Life-Threatening, Hospitalization)
  Sender: FDA-Public Use
  Company Number: 2010001515

PATIENT
  Age: 73 Year
  Sex: Male

DRUGS (3)
  1. NEURONTIN [Concomitant]
  2. CODEIN (CODEINE PHOSPHATE) [Concomitant]
  3. ERLOTINIB HYDROCHLORIDE [Suspect]
     Indication: NON-SMALL CELL LUNG CANCER
     Dosage: 150 MG, UID/QD, ORAL
     Route: 048
     Dates: start: 20100311, end: 20100413

REACTIONS (8)
  - HEPATOJUGULAR REFLUX [None]
  - HAEMATOCRIT DECREASED [None]
  - PCO2 DECREASED [None]
  - BLOOD PH DECREASED [None]
  - PO2 DECREASED [None]
  - PNEUMONITIS [None]
  - CARBON DIOXIDE INCREASED [None]
  - HAEMOGLOBIN DECREASED [None]
